FAERS Safety Report 16084372 (Version 1)
Quarter: 2019Q1

REPORT INFORMATION
  Report Type: Spontaneous
  Country: JP (occurrence: JP)
  Receive Date: 20190318
  Receipt Date: 20190318
  Transmission Date: 20190418
  Serious: Yes (Hospitalization)
  Sender: FDA-Public Use
  Company Number: JP-LUNDBECK-DKLU2032016

PATIENT
  Age: 11 Month
  Sex: Female
  Weight: 9 kg

DRUGS (4)
  1. SABRIL [Suspect]
     Active Substance: VIGABATRIN
     Route: 048
     Dates: start: 20170602, end: 20170608
  2. SABRIL [Suspect]
     Active Substance: VIGABATRIN
     Indication: INFANTILE SPASMS
     Route: 048
     Dates: start: 20170512, end: 20170518
  3. SABRIL [Suspect]
     Active Substance: VIGABATRIN
     Route: 048
     Dates: start: 20170519, end: 20170525
  4. SABRIL [Suspect]
     Active Substance: VIGABATRIN
     Route: 048
     Dates: start: 20170526, end: 20170601

REACTIONS (3)
  - Drug ineffective [Unknown]
  - Hypoglycaemia [Recovered/Resolved with Sequelae]
  - Eye disorder [Recovering/Resolving]

NARRATIVE: CASE EVENT DATE: 20170612
